FAERS Safety Report 12319578 (Version 1)
Quarter: 2016Q2

REPORT INFORMATION
  Report Type: Spontaneous
  Country: US (occurrence: US)
  Receive Date: 20160429
  Receipt Date: 20160429
  Transmission Date: 20160815
  Serious: No
  Sender: FDA-Public Use
  Company Number: US-ROCHE-1600595

PATIENT
  Sex: Male
  Weight: 87.17 kg

DRUGS (2)
  1. ESBRIET [Suspect]
     Active Substance: PIRFENIDONE
     Indication: IDIOPATHIC PULMONARY FIBROSIS
     Dosage: 3 CAPS PO TID, TOTAL 2403MG DAILY
     Route: 048
     Dates: start: 20150706
  2. ESBRIET [Suspect]
     Active Substance: PIRFENIDONE
     Dosage: 2 TAB FOR 1 WEEK
     Route: 048

REACTIONS (3)
  - Pruritus [Unknown]
  - Abdominal discomfort [Unknown]
  - Fatigue [Unknown]
